FAERS Safety Report 7998319-0 (Version None)
Quarter: 2011Q4

REPORT INFORMATION
  Report Type: 
  Country: None (occurrence: None)
  Receive Date: 20111221
  Receipt Date: 20110707
  Transmission Date: 20120403
  Serious: No
  Sender: FDA-Public Use
  Company Number: US-GLAXOSMITHKLINE-A0935338A

PATIENT
  Sex: Female

DRUGS (9)
  1. EFFEXOR [Concomitant]
  2. LOSARTAN POTASSIUM [Concomitant]
  3. AMLODIPINE [Concomitant]
  4. ATENOLOL [Concomitant]
  5. DEXLANSOPRAZOLE [Concomitant]
  6. LOVAZA [Suspect]
     Indication: BLOOD TRIGLYCERIDES INCREASED
     Dosage: 2CAP TWICE PER DAY
     Route: 048
     Dates: start: 20080101
  7. MIRALAX [Concomitant]
  8. METFORMIN HCL [Concomitant]
  9. VITAMIN D [Concomitant]

REACTIONS (2)
  - MEDICATION RESIDUE [None]
  - HYPERHIDROSIS [None]
